FAERS Safety Report 6446298-X (Version None)
Quarter: 2009Q4

REPORT INFORMATION
  Report Type: 
  Country: None (occurrence: None)
  Receive Date: 20091116
  Receipt Date: 20091111
  Transmission Date: 20100525
  Serious: Yes (Death)
  Sender: FDA-Public Use
  Company Number: CIO09020051

PATIENT
  Age: 84 Year
  Sex: Female

DRUGS (7)
  1. PEPTO-BISMOL ORIGINAL FORMULA, ORIGINAL FLAVOR (BISMUTH SUBSALICYLATE [Suspect]
     Indication: COELIAC DISEASE
     Dosage: 2 TBSP, 1 /DAY, ORAL
     Route: 048
  2. CARDIAC THERAPY [Concomitant]
  3. ANTI-ASTHMATICS [Concomitant]
  4. SYNTHROID [Concomitant]
  5. GLAUCOMA DROPS [Concomitant]
  6. VITAMINS /90003601/ [Concomitant]
  7. LOMOTIL /00034001/ (ATROPINE SULFATE, DIPHENOXYLATE HYDROCHLORIDE) [Concomitant]

REACTIONS (6)
  - EPISTAXIS [None]
  - GASTROINTESTINAL HAEMORRHAGE [None]
  - GINGIVAL BLEEDING [None]
  - MYOCARDIAL INFARCTION [None]
  - POST PROCEDURAL COMPLICATION [None]
  - SEPSIS [None]
